FAERS Safety Report 13528087 (Version 1)
Quarter: 2017Q2

REPORT INFORMATION
  Report Type: Spontaneous
  Country: US (occurrence: US)
  Receive Date: 20170509
  Receipt Date: 20170509
  Transmission Date: 20170830
  Serious: No
  Sender: FDA-Public Use
  Company Number: US-009507513-1705USA003178

PATIENT
  Sex: Female
  Weight: 61.22 kg

DRUGS (1)
  1. NEXPLANON [Suspect]
     Active Substance: ETONOGESTREL
     Dosage: ONE INSERTION
     Route: 059
     Dates: start: 20170106

REACTIONS (2)
  - Device kink [Unknown]
  - Implant site pain [Unknown]

NARRATIVE: CASE EVENT DATE: 20170331
